FAERS Safety Report 7194071-X (Version None)
Quarter: 2010Q4

REPORT INFORMATION
  Report Type: 
  Country: None (occurrence: None)
  Receive Date: 20101223
  Receipt Date: 20100929
  Transmission Date: 20110411
  Serious: No
  Sender: FDA-Public Use
  Company Number: US-AMGEN-KDL437369

PATIENT

DRUGS (6)
  1. ENBREL [Suspect]
     Indication: RHEUMATOID ARTHRITIS
     Dosage: 50 MG, QWK
     Route: 058
     Dates: start: 20100723, end: 20100920
  2. HYDROXYCHLOROQUINE SULFATE [Concomitant]
     Dosage: UNK UNK, BID
     Route: 048
     Dates: start: 20080219
  3. METFORMIN [Concomitant]
     Dosage: UNK UNK, QD
     Route: 048
     Dates: start: 20090101
  4. TOPROL-XL [Concomitant]
     Dosage: UNK UNK, QD
     Route: 048
     Dates: start: 20071211
  5. CHOLESTYRAMINE [Concomitant]
     Dosage: UNK UNK, QD
     Route: 048
     Dates: start: 20071211
  6. MIRCETTE [Concomitant]
     Dosage: UNK UNK, QD
     Route: 048
     Dates: start: 20071211

REACTIONS (6)
  - ERYTHEMA [None]
  - FEELING HOT [None]
  - INJECTION SITE ERYTHEMA [None]
  - INJECTION SITE PRURITUS [None]
  - LOCAL SWELLING [None]
  - PRURITUS [None]
